FAERS Safety Report 19796928 (Version 1)
Quarter: 2021Q3

REPORT INFORMATION
  Report Type: Report from Study
  Country: US (occurrence: US)
  Receive Date: 20210907
  Receipt Date: 20210907
  Transmission Date: 20211014
  Serious: Yes (Hospitalization)
  Sender: FDA-Public Use
  Company Number: US-JNJFOC-20210907084

PATIENT
  Age: 60 Year
  Sex: Female
  Weight: 71.8 kg

DRUGS (3)
  1. SELEXIPAG [Suspect]
     Active Substance: SELEXIPAG
     Indication: PULMONARY ARTERIAL HYPERTENSION
     Route: 048
  2. LETAIRIS [Concomitant]
     Active Substance: AMBRISENTAN
  3. AMLODIPINE [Concomitant]
     Active Substance: AMLODIPINE BESYLATE

REACTIONS (1)
  - Musculoskeletal chest pain [Unknown]

NARRATIVE: CASE EVENT DATE: 20210810
